FAERS Safety Report 6368410-3 (Version None)
Quarter: 2009Q3

REPORT INFORMATION
  Report Type: 
  Country: None (occurrence: None)
  Receive Date: 20090831
  Receipt Date: 20090814
  Transmission Date: 20100115
  Serious: Yes (Other)
  Sender: FDA-Public Use
  Company Number: 09-010

PATIENT
  Age: 67 Year
  Sex: Female

DRUGS (8)
  1. ALERNARIA-1:20 GLY [Suspect]
     Indication: HYPERSENSITIVITY
     Dosage: OFFICE PREPARED MIX
     Dates: start: 20090701, end: 20090801
  2. ALERNARIA-1:20 GLY [Suspect]
  3. ALERNARIA-1:20 GLY [Suspect]
  4. ALERNARIA-1:20 GLY [Suspect]
  5. ALTERNIA- STRENGTH 1:20 GLY [Suspect]
  6. ASPERGILLUS FUMIGATUS-STRENGTH 1:20GLY [Suspect]
  7. EPICOCCUM- STRENGTH 1:40GLY [Suspect]
  8. EPITHELIA, HORSE- STRENGTH 1:20GLY [Suspect]

REACTIONS (1)
  - INJECTION SITE HAEMATOMA [None]
